FAERS Safety Report 17761137 (Version 1)
Quarter: 2020Q2

REPORT INFORMATION
  Report Type: Spontaneous
  Country: US (occurrence: US)
  Receive Date: 20200508
  Receipt Date: 20200508
  Transmission Date: 20200714
  Serious: No
  Sender: FDA-Public Use
  Company Number: US-TEVA-2020-US-1233451

PATIENT
  Sex: Female

DRUGS (1)
  1. PRAVASTATIN SODIUM. [Suspect]
     Active Substance: PRAVASTATIN SODIUM
     Route: 065

REACTIONS (3)
  - Wrong technique in product usage process [Unknown]
  - Gastrointestinal tract irritation [Unknown]
  - Product substitution issue [Unknown]
